FAERS Safety Report 14552979 (Version 4)
Quarter: 2019Q3

REPORT INFORMATION
  Report Type: Spontaneous
  Country: US (occurrence: US)
  Receive Date: 20180220
  Receipt Date: 20190918
  Transmission Date: 20191004
  Serious: Yes (Other)
  Sender: FDA-Public Use
  Company Number: US-JNJFOC-20180212840

PATIENT
  Sex: Female

DRUGS (4)
  1. RISPERDAL CONSTA [Suspect]
     Active Substance: RISPERIDONE
     Indication: PRODUCT USED FOR UNKNOWN INDICATION
     Route: 030
  2. RISPERDAL [Suspect]
     Active Substance: RISPERIDONE
     Indication: PRODUCT USED FOR UNKNOWN INDICATION
     Route: 065
     Dates: start: 2006, end: 2008
  3. RISPERIDONE. [Suspect]
     Active Substance: RISPERIDONE
     Indication: PRODUCT USED FOR UNKNOWN INDICATION
     Route: 048
     Dates: start: 2008, end: 201703
  4. RISPERIDONE. [Suspect]
     Active Substance: RISPERIDONE
     Route: 048
     Dates: start: 2017, end: 201704

REACTIONS (15)
  - Blood cholesterol increased [Unknown]
  - Anxiety [Unknown]
  - Balance disorder [Unknown]
  - Gait disturbance [Unknown]
  - Hunger [Unknown]
  - Hyperhidrosis [Unknown]
  - Hypertension [Unknown]
  - Rhinorrhoea [Unknown]
  - Depressed mood [Recovered/Resolved]
  - Obesity [Unknown]
  - Lethargy [Recovered/Resolved]
  - Muscle spasms [Unknown]
  - Insomnia [Recovered/Resolved]
  - Abdominal pain [Unknown]
  - Restlessness [Unknown]
